FAERS Safety Report 18365591 (Version 1)
Quarter: 2020Q4

REPORT INFORMATION
  Report Type: Spontaneous
  Country: US (occurrence: US)
  Receive Date: 20201009
  Receipt Date: 20201009
  Transmission Date: 20210114
  Serious: No
  Sender: FDA-Public Use
  Company Number: US-SUNOVION-2020SUN002864

PATIENT
  Sex: Female

DRUGS (1)
  1. APTIOM [Suspect]
     Active Substance: ESLICARBAZEPINE ACETATE
     Indication: EPILEPSY
     Dosage: 200 MG
     Route: 048
     Dates: start: 202009

REACTIONS (7)
  - Night sweats [Unknown]
  - Nightmare [Unknown]
  - Underdose [Unknown]
  - Muscular weakness [Unknown]
  - Tremor [Unknown]
  - Fall [Unknown]
  - Nausea [Unknown]
